FAERS Safety Report 10778282 (Version 1)
Quarter: 2015Q1

REPORT INFORMATION
  Report Type: Spontaneous
  Country: US (occurrence: US)
  Receive Date: 20150209
  Receipt Date: 20150209
  Transmission Date: 20150721
  Serious: No
  Sender: FDA-Public Use
  Company Number: US-AMGEN-USASP2014077261

PATIENT
  Age: 76 Year
  Sex: Female

DRUGS (2)
  1. NPLATE [Suspect]
     Active Substance: ROMIPLOSTIM
     Indication: PLATELET COUNT DECREASED
     Dosage: UNK UNK, QWK
     Route: 065
  2. HUMIRA [Suspect]
     Active Substance: ADALIMUMAB
     Indication: CROHN^S DISEASE
     Dosage: 40 MG, UNK
     Route: 065
     Dates: start: 2011

REACTIONS (7)
  - Influenza [Unknown]
  - Malaise [Unknown]
  - Platelet count abnormal [Unknown]
  - Epistaxis [Unknown]
  - Platelet count decreased [Unknown]
  - Drug ineffective [Unknown]
  - Scab [Unknown]

NARRATIVE: CASE EVENT DATE: 2013
